FAERS Safety Report 13620173 (Version 1)
Quarter: 2017Q2

REPORT INFORMATION
  Report Type: Report from Study
  Country: None (occurrence: US)
  Receive Date: 20170607
  Receipt Date: 20170607
  Transmission Date: 20170830
  Serious: Yes (Other)
  Sender: FDA-Public Use
  Company Number: US-ABBVIE-17K-163-1935325-00

PATIENT
  Age: 64 Year
  Sex: Male

DRUGS (1)
  1. HUMIRA [Suspect]
     Active Substance: ADALIMUMAB
     Indication: RHEUMATOID ARTHRITIS
     Route: 058
     Dates: start: 20161014

REACTIONS (6)
  - Skin cancer [Recovering/Resolving]
  - Nausea [Recovering/Resolving]
  - Hypophagia [Recovering/Resolving]
  - Wound [Recovering/Resolving]
  - Pain [Recovering/Resolving]
  - Anal cancer stage IV [Recovering/Resolving]

NARRATIVE: CASE EVENT DATE: 201702
